FAERS Safety Report 10504091 (Version 1)
Quarter: 2014Q4

REPORT INFORMATION
  Report Type: Spontaneous
  Country: US (occurrence: US)
  Receive Date: 20141008
  Receipt Date: 20141008
  Transmission Date: 20150528
  Serious: No
  Sender: FDA-Public Use
  Company Number: US-BEH-2013038636

PATIENT
  Sex: Female
  Weight: 121 kg

DRUGS (15)
  1. LEXAPRO [Concomitant]
     Active Substance: ESCITALOPRAM OXALATE
  2. VITAMIN C [Concomitant]
     Active Substance: ASCORBIC ACID
  3. ALL OTHER THERAPEUTIC PRODUCTS [Concomitant]
     Active Substance: UNSPECIFIED INGREDIENT
  4. PREDNISONE. [Concomitant]
     Active Substance: PREDNISONE
  5. SIMVASTATIN. [Concomitant]
     Active Substance: SIMVASTATIN
  6. FAMOTIDINE. [Concomitant]
     Active Substance: FAMOTIDINE
  7. PRIVIGEN [Suspect]
     Active Substance: HUMAN IMMUNOGLOBULIN G
     Indication: DERMATOMYOSITIS
     Dosage: EVERY 3-4 WEEKS
     Route: 042
  8. NORVASC [Concomitant]
     Active Substance: AMLODIPINE BESYLATE
  9. MULTIVITAMIN [Concomitant]
     Active Substance: VITAMINS
  10. NORCO [Concomitant]
     Active Substance: ACETAMINOPHEN\HYDROCODONE BITARTRATE
  11. VITAMIN D [Concomitant]
     Active Substance: CHOLECALCIFEROL
  12. CYMBALTA [Concomitant]
     Active Substance: DULOXETINE HYDROCHLORIDE
  13. SOMA [Concomitant]
     Active Substance: CARISOPRODOL
  14. BENAZEPRIL [Concomitant]
     Active Substance: BENAZEPRIL\BENAZEPRIL HYDROCHLORIDE
  15. FISH OIL [Concomitant]
     Active Substance: FISH OIL

REACTIONS (1)
  - Drug ineffective for unapproved indication [Unknown]
